FAERS Safety Report 20140311 (Version 1)
Quarter: 2021Q4

REPORT INFORMATION
  Report Type: Spontaneous
  Country: US (occurrence: US)
  Receive Date: 20211202
  Receipt Date: 20211202
  Transmission Date: 20220303
  Serious: Yes (Other)
  Sender: FDA-Public Use
  Company Number: US-SA-SAC20211130000396

PATIENT
  Age: 75 Year
  Sex: Female

DRUGS (1)
  1. ZANTAC [Suspect]
     Active Substance: RANITIDINE HYDROCHLORIDE
     Dosage: UNK, QD
     Dates: start: 201901, end: 202003

REACTIONS (3)
  - Breast cancer stage II [Unknown]
  - Colon cancer stage II [Unknown]
  - Renal cancer stage II [Unknown]

NARRATIVE: CASE EVENT DATE: 20190901
